FAERS Safety Report 8455266-8 (Version None)
Quarter: 2012Q2

REPORT INFORMATION
  Report Type: 
  Country: None (occurrence: None)
  Receive Date: 20120621
  Receipt Date: 20120614
  Transmission Date: 20120825
  Serious: Yes (Other)
  Sender: FDA-Public Use
  Company Number: FI-NOVOPROD-347682

PATIENT
  Age: 59 Year
  Sex: Male
  Weight: 140 kg

DRUGS (4)
  1. BISOPROLOL FUMARATE [Concomitant]
     Dosage: UNK
     Route: 065
  2. VICTOZA [Suspect]
     Indication: TYPE 2 DIABETES MELLITUS
     Dosage: 0.6 MG, QD
     Route: 058
     Dates: start: 20120227
  3. VICTOZA [Suspect]
     Dosage: 1.2 MG, QD
     Route: 058
     Dates: end: 20120301
  4. FUROSEMIDE [Concomitant]
     Dosage: UNK
     Route: 065

REACTIONS (2)
  - NAUSEA [None]
  - ARRHYTHMIA [None]
